FAERS Safety Report 4326122-1 (Version None)
Quarter: 2004Q1

REPORT INFORMATION
  Report Type: 
  Country: None (occurrence: None)
  Receive Date: 20040323
  Receipt Date: 20040217
  Transmission Date: 20041129
  Serious: No
  Sender: FDA-Public Use
  Company Number: US_0402100899

PATIENT
  Age: 77 Year
  Sex: Male
  Weight: 73 kg

DRUGS (8)
  1. CIALIS [Suspect]
     Indication: ERECTILE DYSFUNCTION
     Dosage: 20 MG
     Dates: start: 20040217
  2. DIGOXIN [Concomitant]
  3. COUMADIN [Concomitant]
  4. EFFEXOR [Concomitant]
  5. XANAX [Concomitant]
  6. NEXIUM [Concomitant]
  7. LIPITOR [Concomitant]
  8. TRAZADONE (TRAZODONE) [Concomitant]

REACTIONS (1)
  - THERAPEUTIC RESPONSE DECREASED [None]
